FAERS Safety Report 6332771-1 (Version None)
Quarter: 2009Q3

REPORT INFORMATION
  Report Type: 
  Country: None (occurrence: None)
  Receive Date: 20090828
  Receipt Date: 20090821
  Transmission Date: 20100115
  Serious: Yes (Hospitalization, Other)
  Sender: FDA-Public Use
  Company Number: B0250377A

PATIENT
  Sex: Female

DRUGS (10)
  1. PAXIL [Suspect]
     Indication: DEPRESSION
     Dosage: 20MG PER DAY
     Route: 048
     Dates: start: 20010222, end: 20090503
  2. FLUVOXAMINE MALEATE [Suspect]
     Indication: DEPRESSION
     Route: 048
     Dates: start: 20001127, end: 20010503
  3. DOGMATYL [Suspect]
     Indication: DRUG USE FOR UNKNOWN INDICATION
     Dosage: 150MG PER DAY
     Route: 048
  4. ROHYPNOL FLUNITRAZEPAM [Concomitant]
     Indication: DEPRESSION
     Dosage: 1TAB PER DAY
     Dates: start: 20000727
  5. DEPAS [Concomitant]
     Indication: DEPRESSION
     Dosage: .5MG PER DAY
     Route: 048
     Dates: start: 20001218
  6. KALLIDINOGENASE [Concomitant]
     Indication: HYPERTENSION
     Dosage: 100MG PER DAY
     Route: 048
     Dates: start: 20001210
  7. THEO-DUR [Concomitant]
     Dosage: 400MG PER DAY
     Route: 048
  8. ZANTAC [Concomitant]
     Route: 048
  9. ALLOPURINOL [Concomitant]
     Dosage: 100MG PER DAY
     Route: 048
  10. OXYGEN [Concomitant]
     Route: 055

REACTIONS (11)
  - ABNORMAL BEHAVIOUR [None]
  - AGGRESSION [None]
  - AGITATION [None]
  - CONFUSIONAL STATE [None]
  - DECREASED APPETITE [None]
  - DISTURBANCE IN ATTENTION [None]
  - HALLUCINATION, AUDITORY [None]
  - HALLUCINATION, VISUAL [None]
  - HYPERKINESIA [None]
  - INSOMNIA [None]
  - LOGORRHOEA [None]
